FAERS Safety Report 9430106 (Version 1)
Quarter: 2013Q3

REPORT INFORMATION
  Report Type: Spontaneous
  Country: US (occurrence: US)
  Receive Date: 20130730
  Receipt Date: 20130730
  Transmission Date: 20140515
  Serious: No
  Sender: FDA-Public Use
  Company Number: US-ABBOTT-13P-163-1075757-00

PATIENT
  Age: 80 Year
  Sex: Female
  Weight: 102.15 kg

DRUGS (10)
  1. NIASPAN (COATED) [Suspect]
     Indication: BLOOD CHOLESTEROL INCREASED
     Dates: start: 20130325, end: 20130407
  2. COUMADIN [Concomitant]
     Indication: DEEP VEIN THROMBOSIS
     Dates: start: 1993
  3. COUMADIN [Concomitant]
     Indication: PULMONARY EMBOLISM
  4. PRILOSEC [Concomitant]
     Indication: GASTROOESOPHAGEAL REFLUX DISEASE
  5. FLUTICASONE [Concomitant]
     Indication: HYPERSENSITIVITY
  6. ALLOPURINOL [Concomitant]
     Indication: GOUT
  7. FISH OIL [Concomitant]
     Indication: SUPPLEMENTATION THERAPY
  8. VITAMIN B 12 [Concomitant]
     Indication: SUPPLEMENTATION THERAPY
  9. VITAMIN D3 [Concomitant]
     Indication: SUPPLEMENTATION THERAPY
  10. TRAZODONE [Concomitant]
     Indication: INSOMNIA

REACTIONS (2)
  - Pruritus [Recovered/Resolved]
  - Urticaria [Recovered/Resolved]
